FAERS Safety Report 13294729 (Version 1)
Quarter: 2017Q1

REPORT INFORMATION
  Report Type: Spontaneous
  Country: US (occurrence: US)
  Receive Date: 20170303
  Receipt Date: 20170303
  Transmission Date: 20170428
  Serious: No
  Sender: FDA-Public Use
  Company Number: US-JNJFOC-20170206241

PATIENT
  Sex: Male

DRUGS (1)
  1. XARELTO [Suspect]
     Active Substance: RIVAROXABAN
     Indication: THROMBOSIS
     Route: 048
     Dates: start: 201701

REACTIONS (5)
  - Pruritus [Unknown]
  - Diarrhoea [Unknown]
  - Peripheral swelling [Unknown]
  - Incoherent [Unknown]
  - Dizziness [Unknown]

NARRATIVE: CASE EVENT DATE: 20170205
